FAERS Safety Report 7557860-5 (Version None)
Quarter: 2011Q2

REPORT INFORMATION
  Report Type: 
  Country: None (occurrence: None)
  Receive Date: 20110613
  Receipt Date: 20110603
  Transmission Date: 20111010
  Serious: Yes (Other)
  Sender: FDA-Public Use
  Company Number: 2011SP026508

PATIENT
  Age: 28 Year
  Sex: Female

DRUGS (6)
  1. AZITHROMYCIN [Suspect]
     Indication: PHARYNGITIS
     Dosage: 500 MG;QD;PO
     Route: 048
     Dates: start: 20101201, end: 20101201
  2. NUVARING [Suspect]
     Indication: CONTRACEPTION
     Dates: start: 20070101, end: 20110201
  3. CIPROFLOXACIN [Suspect]
     Indication: TONSILLITIS
     Dosage: 500 MG;BID;PO
     Route: 048
     Dates: start: 20110201, end: 20110201
  4. CEFATRIZINE (CEFATRIZINE) [Suspect]
     Indication: TONSILLITIS
     Dosage: 500 MG;BID;PO
     Route: 048
     Dates: start: 20110101, end: 20110101
  5. FLUOXETINE HCL [Concomitant]
  6. MEXAZOLAM [Concomitant]

REACTIONS (4)
  - PHARYNGITIS [None]
  - TONSILLITIS [None]
  - DEVICE EXPULSION [None]
  - DRUG INTERACTION [None]
